FAERS Safety Report 24531711 (Version 1)
Quarter: 2024Q4

REPORT INFORMATION
  Report Type: Report from Study
  Country: MX (occurrence: MX)
  Receive Date: 20241022
  Receipt Date: 20241022
  Transmission Date: 20250114
  Serious: No
  Sender: ROCHE
  Company Number: MX-ROCHE-3578308

PATIENT
  Age: 2 Year
  Sex: Male
  Weight: 19.5 kg

DRUGS (3)
  1. PULMOZYME [Suspect]
     Active Substance: DORNASE ALFA
     Indication: Cystic fibrosis
     Route: 055
     Dates: start: 2018
  2. PANCREATIN [Concomitant]
     Active Substance: PANCRELIPASE
  3. METOCLOPRAMIDE [Concomitant]
     Active Substance: METOCLOPRAMIDE

REACTIONS (2)
  - Off label use [Unknown]
  - Attention deficit hyperactivity disorder [Unknown]

NARRATIVE: CASE EVENT DATE: 20180101
